FAERS Safety Report 11245097 (Version 2)
Quarter: 2016Q1

REPORT INFORMATION
  Report Type: Spontaneous
  Country: TR (occurrence: TR)
  Receive Date: 20150707
  Receipt Date: 20160226
  Transmission Date: 20160525
  Serious: Yes (Hospitalization)
  Sender: FDA-Public Use
  Company Number: TR-SA-2015SA093006

PATIENT
  Sex: Female
  Weight: 2.5 kg

DRUGS (3)
  1. ARAVA [Suspect]
     Active Substance: LEFLUNOMIDE
     Indication: MATERNAL EXPOSURE TIMING UNSPECIFIED
     Dosage: DOSE/SCHEDULE: 1*1
     Route: 064
     Dates: start: 20150511, end: 20150515
  2. PREDNISOLON [Suspect]
     Active Substance: PREDNISOLONE
     Indication: MATERNAL EXPOSURE TIMING UNSPECIFIED
     Route: 064
  3. PREDNISOLON [Suspect]
     Active Substance: PREDNISOLONE
     Indication: MATERNAL EXPOSURE TIMING UNSPECIFIED
     Route: 064

REACTIONS (2)
  - Lung infection [Unknown]
  - Foetal exposure during pregnancy [Unknown]
